FAERS Safety Report 5727069-6 (Version None)
Quarter: 2008Q2

REPORT INFORMATION
  Report Type: 
  Country: None (occurrence: None)
  Receive Date: 20080430
  Receipt Date: 20080415
  Transmission Date: 20081010
  Serious: Yes (Hospitalization)
  Sender: FDA-Public Use
  Company Number: 2008000858

PATIENT
  Age: 46 Year
  Sex: Female

DRUGS (8)
  1. ERLOTINIB (ERLOTINIB HCL) (TABLET) (ERLOTINIB HCL) [Suspect]
     Indication: COLORECTAL CANCER METASTATIC
     Dosage: (150 MG, QD), ORAL
     Route: 048
     Dates: start: 20080305, end: 20080310
  2. BEVACIZUMAB [Suspect]
     Indication: COLORECTAL CANCER METASTATIC
     Dosage: (525 MG, 1 X PER 13 DAY), INTRAVENOUS
     Route: 042
     Dates: start: 20071026, end: 20080310
  3. CAPECITABINE (CAPECITABINE) [Suspect]
     Indication: COLORECTAL CANCER METASTATIC
     Dosage: (3360 MG), ORAL
     Route: 048
     Dates: start: 20071026
  4. OXALIPLATIN [Suspect]
     Indication: COLORECTAL CANCER METASTATIC
     Dosage: (237.9 MG, 1 X PER 3 WEEK), INTRAVENOUS
     Route: 042
     Dates: start: 20071026
  5. IBUPROFEN [Concomitant]
  6. ACETAMINOPHEN [Concomitant]
  7. OMEPRAZOLE [Concomitant]
  8. LACTULOSIE (LACTULOSE) [Concomitant]

REACTIONS (1)
  - COLITIS ISCHAEMIC [None]
